FAERS Safety Report 14176085 (Version 1)
Quarter: 2017Q4

REPORT INFORMATION
  Report Type: Spontaneous
  Country: US (occurrence: US)
  Receive Date: 20171109
  Receipt Date: 20171109
  Transmission Date: 20180321
  Serious: Yes (Other)
  Sender: FDA-Public Use
  Company Number: None

PATIENT
  Age: 16 Year
  Sex: Female
  Weight: 56.7 kg

DRUGS (1)
  1. METHYLPHENIDATE ER 36MG GENERIC FOR CONCERTA ER 36MG [Suspect]
     Active Substance: METHYLPHENIDATE
     Indication: ATTENTION DEFICIT/HYPERACTIVITY DISORDER
     Dosage: ?          QUANTITY:1 CAPSULE(S);?
     Route: 048
     Dates: start: 20171008, end: 20171108

REACTIONS (4)
  - Palpitations [None]
  - Dizziness [None]
  - Impaired work ability [None]
  - Educational problem [None]

NARRATIVE: CASE EVENT DATE: 20171109
